FAERS Safety Report 17061211 (Version 3)
Quarter: 2020Q1

REPORT INFORMATION
  Report Type: Spontaneous
  Country: US (occurrence: US)
  Receive Date: 20191121
  Receipt Date: 20200303
  Transmission Date: 20200409
  Serious: No
  Sender: FDA-Public Use
  Company Number: US-ARRAY-2019-06476

PATIENT

DRUGS (2)
  1. BRAFTOVI [Suspect]
     Active Substance: ENCORAFENIB
     Indication: CONNECTIVE TISSUE NEOPLASM
     Dosage: 450 MG, QD
     Route: 048
     Dates: start: 20191003
  2. MEKTOVI [Suspect]
     Active Substance: BINIMETINIB
     Indication: CONNECTIVE TISSUE NEOPLASM
     Dosage: 45 MG, BID
     Route: 048
     Dates: start: 20191003

REACTIONS (6)
  - Arthralgia [Unknown]
  - Product use in unapproved indication [Unknown]
  - Pruritus [Unknown]
  - Migraine [Unknown]
  - Constipation [Unknown]
  - Nausea [Unknown]

NARRATIVE: CASE EVENT DATE: 20191224
